FAERS Safety Report 5079119-0 (Version None)
Quarter: 2006Q3

REPORT INFORMATION
  Report Type: 
  Country: None (occurrence: None)
  Receive Date: 20060720
  Receipt Date: 20050811
  Transmission Date: 20061208
  Serious: Yes (Other)
  Sender: FDA-Public Use
  Company Number: 2005114270

PATIENT
  Age: 62 Year
  Sex: Female

DRUGS (2)
  1. CELEBREX [Suspect]
     Indication: ILL-DEFINED DISORDER
     Dosage: 200 MG (200 MG, 1 IN 1 D), UNKNOWN
     Dates: start: 20000101
  2. BEXTRA [Suspect]
     Indication: ILL-DEFINED DISORDER

REACTIONS (2)
  - GASTROINTESTINAL DISORDER [None]
  - MYOCARDIAL INFARCTION [None]
